FAERS Safety Report 8367723-3 (Version None)
Quarter: 2012Q2

REPORT INFORMATION
  Report Type: 
  Country: None (occurrence: None)
  Receive Date: 20120517
  Receipt Date: 20120510
  Transmission Date: 20120825
  Serious: Yes (Death, Hospitalization)
  Sender: FDA-Public Use
  Company Number: US-GLAXOSMITHKLINE-A0942017A

PATIENT
  Age: 72 Year
  Sex: Female
  Weight: 110.5 kg

DRUGS (11)
  1. GLIMEPIRIDE [Concomitant]
     Dates: end: 20100627
  2. METOPROLOL [Concomitant]
     Dates: end: 20100627
  3. HYDROCHLOROTHIAZIDE [Concomitant]
     Dates: end: 20100627
  4. AVANDAMET [Suspect]
     Indication: DIABETES MELLITUS
     Dosage: 1TAB PER DAY
     Route: 048
     Dates: start: 20090801, end: 20100627
  5. TAMOXIFEN CITRATE [Concomitant]
     Dates: end: 20100627
  6. ALLOPURINOL [Concomitant]
     Dates: end: 20100627
  7. ATACAND [Concomitant]
  8. SERTRALINE HYDROCHLORIDE [Concomitant]
     Dates: end: 20100627
  9. TOPROL-XL [Concomitant]
  10. ZOCOR [Concomitant]
  11. LIPITOR [Concomitant]
     Dates: end: 20100627

REACTIONS (1)
  - CARDIO-RESPIRATORY ARREST [None]
